FAERS Safety Report 6418251-3 (Version None)
Quarter: 2009Q4

REPORT INFORMATION
  Report Type: 
  Country: None (occurrence: None)
  Receive Date: 20091021
  Receipt Date: 20090609
  Transmission Date: 20100525
  Serious: No
  Sender: FDA-Public Use
  Company Number: ALL1-2009-01579

PATIENT
  Age: 10 Year
  Sex: Male
  Weight: 37.6 kg

DRUGS (3)
  1. VYVANSE [Suspect]
     Indication: ATTENTION DEFICIT/HYPERACTIVITY DISORDER
     Dosage: 30 MG, 1X/DAY:QD, ORAL, 40 MG, 1X/DAY:QD, ORAL, 50 MG, 1X/DAY:QD, ORAL
     Route: 048
     Dates: end: 20090605
  2. VYVANSE [Suspect]
     Indication: ATTENTION DEFICIT/HYPERACTIVITY DISORDER
     Dosage: 30 MG, 1X/DAY:QD, ORAL, 40 MG, 1X/DAY:QD, ORAL, 50 MG, 1X/DAY:QD, ORAL
     Route: 048
     Dates: start: 20081101
  3. VYVANSE [Suspect]
     Indication: ATTENTION DEFICIT/HYPERACTIVITY DISORDER
     Dosage: 30 MG, 1X/DAY:QD, ORAL, 40 MG, 1X/DAY:QD, ORAL, 50 MG, 1X/DAY:QD, ORAL
     Route: 048
     Dates: start: 20090606

REACTIONS (2)
  - IMPULSIVE BEHAVIOUR [None]
  - PRODUCT QUALITY ISSUE [None]
